FAERS Safety Report 7797392-2 (Version None)
Quarter: 2011Q4

REPORT INFORMATION
  Report Type: 
  Country: None (occurrence: None)
  Receive Date: 20111005
  Receipt Date: 20110928
  Transmission Date: 20120403
  Serious: Yes (Other)
  Sender: FDA-Public Use
  Company Number: DE-PFIZER INC-2011233848

PATIENT

DRUGS (4)
  1. SIROLIMUS [Suspect]
     Dosage: 2 MG/KG, 1X/DAY
  2. MYCOPHENOLATE MOFETIL [Suspect]
     Indication: HEART TRANSPLANT
     Dosage: 2 X 1 G/DAY FOR 2-3 DAYS
     Route: 042
  3. MYCOPHENOLATE MOFETIL [Suspect]
     Route: 048
  4. SIROLIMUS [Suspect]
     Indication: HEART TRANSPLANT
     Dosage: 6 MG/KG, ON DAY OF TRANSPLANTATION
     Route: 048

REACTIONS (1)
  - DUODENAL ULCER [None]
